FAERS Safety Report 9484042 (Version 2)
Quarter: 2013Q3

REPORT INFORMATION
  Report Type: Spontaneous
  Country: CA (occurrence: CA)
  Receive Date: 20130828
  Receipt Date: 20130828
  Transmission Date: 20140515
  Serious: Yes (Other)
  Sender: FDA-Public Use
  Company Number: CA-AMGEN-KDL325237

PATIENT
  Age: 55 Year
  Sex: Female
  Weight: 59 kg

DRUGS (4)
  1. ENBREL [Suspect]
     Indication: RHEUMATOID ARTHRITIS
     Dosage: 50 MG, QWK
     Route: 065
     Dates: start: 20080724
  2. METHOTREXATE [Concomitant]
  3. CELECOXIB [Concomitant]
  4. FOLIC ACID [Concomitant]

REACTIONS (8)
  - Neoplasm skin [Unknown]
  - Cyst [Unknown]
  - Bunion [Not Recovered/Not Resolved]
  - Bunion operation [Not Recovered/Not Resolved]
  - Rash vesicular [Not Recovered/Not Resolved]
  - Herpes simplex [Recovering/Resolving]
  - Sinusitis [Recovering/Resolving]
  - Rash erythematous [Not Recovered/Not Resolved]
